FAERS Safety Report 15002417 (Version 24)
Quarter: 2018Q3

REPORT INFORMATION
  Report Type: Spontaneous
  Country: DE (occurrence: DE)
  Receive Date: 20180612
  Receipt Date: 20180904
  Transmission Date: 20181010
  Serious: Yes (Death, Life-Threatening, Hospitalization, Other)
  Sender: FDA-Public Use
  Company Number: PHHY2018DE016465

PATIENT
  Sex: Male

DRUGS (10)
  1. NOREPINEPHRINE. [Suspect]
     Active Substance: NOREPINEPHRINE
     Indication: ARRHYTHMIA
  2. DICLOFENAC [Suspect]
     Active Substance: DICLOFENAC
     Indication: PROPHYLAXIS
     Dosage: 50 MG, BID
     Route: 048
  3. NOREPINEPHRINE. [Suspect]
     Active Substance: NOREPINEPHRINE
     Indication: TACHYCARDIA
     Dosage: 0.2 ?G/KG BW/MIN
     Route: 065
  4. PANTOPRAZOLE [Concomitant]
     Active Substance: PANTOPRAZOLE
     Indication: GASTRIC DISORDER
  5. METAMIZOLE [Suspect]
     Active Substance: METAMIZOLE
     Indication: ANALGESIC THERAPY
     Dosage: 1 G, QID
     Route: 048
  6. PANTOPRAZOLE [Concomitant]
     Active Substance: PANTOPRAZOLE
     Indication: GASTRITIS PROPHYLAXIS
     Dosage: 40 MG, QD
     Route: 065
  7. RAMIPRIL+HYDROCHLOROTHIAZIDE [Suspect]
     Active Substance: HYDROCHLOROTHIAZIDE\RAMIPRIL
     Indication: HYPERTENSION
     Dosage: 1 DF, BID
     Route: 048
  8. BISOPROLOL [Concomitant]
     Active Substance: BISOPROLOL
     Dosage: 2.5 MG, QD
     Route: 048
  9. DICLOFENAC [Suspect]
     Active Substance: DICLOFENAC
     Indication: EXTRASKELETAL OSSIFICATION
  10. BISOPROLOL [Concomitant]
     Active Substance: BISOPROLOL
     Indication: HYPERTENSION
     Dosage: 25 MG, QD
     Route: 048

REACTIONS (13)
  - Agranulocytosis [Fatal]
  - Leptotrichia infection [Fatal]
  - Swelling [Unknown]
  - Bacterial infection [Fatal]
  - Septic shock [Fatal]
  - Pancytopenia [Fatal]
  - Renal impairment [Fatal]
  - Hepatic function abnormal [Fatal]
  - Respiratory failure [Fatal]
  - Platelet function test abnormal [Fatal]
  - Dysphagia [Unknown]
  - Multiple organ dysfunction syndrome [Fatal]
  - Condition aggravated [Fatal]
